FAERS Safety Report 18006081 (Version 1)
Quarter: 2020Q3

REPORT INFORMATION
  Report Type: Spontaneous
  Country: IE (occurrence: IE)
  Receive Date: 20200709
  Receipt Date: 20200709
  Transmission Date: 20201103
  Serious: Yes (Hospitalization)
  Sender: FDA-Public Use
  Company Number: IE-BAXTER-2020BAX013662

PATIENT
  Age: 67 Year
  Sex: Female

DRUGS (6)
  1. PIPERACILLIN/TAZOBACTAM [Suspect]
     Active Substance: PIPERACILLIN SODIUM\TAZOBACTAM SODIUM
     Indication: PRODUCT USED FOR UNKNOWN INDICATION
     Dosage: VIA FOLFUSOR LV 10
     Route: 065
     Dates: start: 20200618, end: 20200630
  2. CITRATE BUFFER [Suspect]
     Active Substance: SODIUM CITRATE
     Indication: PRODUCT USED FOR UNKNOWN INDICATION
     Dosage: PH 6.5?7.5?VIA FOLFUSOR LV 10
     Route: 065
     Dates: start: 20200618, end: 20200630
  3. PIPERACILLIN/TAZOBACTAM [Suspect]
     Active Substance: PIPERACILLIN SODIUM\TAZOBACTAM SODIUM
     Dosage: VIA FOLFUSOR LV 10
     Route: 065
     Dates: start: 20200618, end: 20200630
  4. SODIUM CHLORIDE INTRAVENOUS INFUSION BP 0.9% W/V [Suspect]
     Active Substance: SODIUM CHLORIDE
     Dosage: VIA FOLFUSOR LV 10
     Route: 065
     Dates: start: 20200618, end: 20200630
  5. SODIUM CHLORIDE INTRAVENOUS INFUSION BP 0.9% W/V [Suspect]
     Active Substance: SODIUM CHLORIDE
     Dosage: VIA FOLFUSOR LV 10
     Route: 065
     Dates: start: 20200618, end: 20200630
  6. SODIUM CHLORIDE INTRAVENOUS INFUSION BP 0.9% W/V [Suspect]
     Active Substance: SODIUM CHLORIDE
     Indication: MEDICATION DILUTION
     Dosage: VIA FOLFUSOR LV 10
     Route: 065
     Dates: start: 20200618, end: 20200630

REACTIONS (1)
  - Condition aggravated [Unknown]

NARRATIVE: CASE EVENT DATE: 20200630
